FAERS Safety Report 5028247-4 (Version None)
Quarter: 2006Q2

REPORT INFORMATION
  Report Type: 
  Country: None (occurrence: None)
  Receive Date: 20060613
  Receipt Date: 20060601
  Transmission Date: 20061013
  Serious: Yes (Other)
  Sender: FDA-Public Use
  Company Number: B0426809A

PATIENT
  Age: 35 Year
  Sex: Female

DRUGS (2)
  1. PAXIL [Suspect]
     Dosage: 20 MG / PER DAY
     Dates: start: 19950101, end: 19990101
  2. VENLAFAXINE HCL [Suspect]
     Dosage: 75 MG /ER DAY
     Dates: start: 19990101

REACTIONS (3)
  - BREAST CANCER IN SITU [None]
  - BREAST MICROCALCIFICATION [None]
  - BREAST PAIN [None]
